FAERS Safety Report 20738505 (Version 1)
Quarter: 2022Q2

REPORT INFORMATION
  Report Type: Spontaneous
  Country: US (occurrence: US)
  Receive Date: 20220422
  Receipt Date: 20220422
  Transmission Date: 20220721
  Serious: No
  Sender: FDA-Public Use
  Company Number: US-BAUSCH-BL-2022-009452

PATIENT
  Age: 64 Year
  Sex: Female
  Weight: 77.180 kg

DRUGS (6)
  1. XIFAXAN [Suspect]
     Active Substance: RIFAXIMIN
     Indication: Gastrointestinal bacterial overgrowth
     Route: 048
     Dates: start: 202204
  2. XIFAXAN [Suspect]
     Active Substance: RIFAXIMIN
     Indication: Product use in unapproved indication
  3. XIFAXAN [Suspect]
     Active Substance: RIFAXIMIN
     Indication: Gastric disorder
  4. PANTOPRAZOLE [Suspect]
     Active Substance: PANTOPRAZOLE
     Indication: Gastrointestinal bacterial overgrowth
     Route: 065
     Dates: start: 20220414
  5. HYDROCHLOROTHIAZIDE [Suspect]
     Active Substance: HYDROCHLOROTHIAZIDE
     Indication: Gastrointestinal bacterial overgrowth
     Route: 065
     Dates: start: 20220414
  6. SIMVASTATIN [Suspect]
     Active Substance: SIMVASTATIN
     Indication: Gastrointestinal bacterial overgrowth
     Route: 065
     Dates: start: 20220414

REACTIONS (3)
  - Product residue present [Unknown]
  - Product use in unapproved indication [Unknown]
  - Product solubility abnormal [Unknown]
